FAERS Safety Report 7581908-5 (Version None)
Quarter: 2011Q2

REPORT INFORMATION
  Report Type: 
  Country: None (occurrence: None)
  Receive Date: 20110629
  Receipt Date: 20110117
  Transmission Date: 20111010
  Serious: Yes (Hospitalization, Other)
  Sender: FDA-Public Use
  Company Number: PHFR2011GB00771

PATIENT
  Sex: Male

DRUGS (3)
  1. CLOZAPINE [Suspect]
     Dosage: 175 MG/DAY
     Dates: start: 20101231, end: 20110121
  2. CLOZAPINE [Suspect]
     Indication: SCHIZOPHRENIA
     Dosage: 175 MG/DAY
     Route: 048
     Dates: start: 20101214
  3. CLOZAPINE [Suspect]
     Dosage: 50 MG +25 MG, DAILY
     Route: 048
     Dates: start: 20110121

REACTIONS (2)
  - TACHYCARDIA [None]
  - ELECTROCARDIOGRAM QT PROLONGED [None]
